FAERS Safety Report 15114813 (Version 2)
Quarter: 2018Q3

REPORT INFORMATION
  Report Type: Spontaneous
  Country: US (occurrence: US)
  Receive Date: 20180706
  Receipt Date: 20180706
  Transmission Date: 20181010
  Serious: Yes (Other)
  Sender: FDA-Public Use
  Company Number: US-GILEAD-2018-0348476

PATIENT
  Age: 40 Year
  Sex: Female

DRUGS (5)
  1. ATAZANAVIR W/RITONAVIR [Concomitant]
     Active Substance: ATAZANAVIR\RITONAVIR
  2. TRUVADA [Suspect]
     Active Substance: EMTRICITABINE\TENOFOVIR DISOPROXIL FUMARATE
     Indication: HIV INFECTION
     Route: 065
  3. ETRAVIRINE [Concomitant]
     Active Substance: ETRAVIRINE
  4. DARUNAVIR W/RITONAVIR [Concomitant]
     Active Substance: DARUNAVIR\RITONAVIR
  5. RALTEGRAVIR. [Concomitant]
     Active Substance: RALTEGRAVIR

REACTIONS (4)
  - Product size issue [Recovered/Resolved]
  - Drug ineffective [Unknown]
  - Multiple drug therapy [Unknown]
  - Genotype drug resistance test positive [Not Recovered/Not Resolved]
